FAERS Safety Report 9188188 (Version 1)
Quarter: 2013Q1

REPORT INFORMATION
  Report Type: Spontaneous
  Country: ES (occurrence: ES)
  Receive Date: 20130325
  Receipt Date: 20130325
  Transmission Date: 20140127
  Serious: Yes (Life-Threatening, Other)
  Sender: FDA-Public Use
  Company Number: ES-ROCHE-1204982

PATIENT
  Age: 74 Year
  Sex: Male

DRUGS (3)
  1. ALTEPLASE [Suspect]
     Indication: PULMONARY EMBOLISM
     Route: 065
  2. HEPARIN [Suspect]
     Indication: PULMONARY EMBOLISM
     Route: 065
  3. UROKINASE [Suspect]
     Indication: PULMONARY EMBOLISM
     Route: 065

REACTIONS (7)
  - Embolism arterial [Unknown]
  - Pulmonary embolism [Unknown]
  - Pelvic venous thrombosis [Unknown]
  - Peripheral artery thrombosis [Unknown]
  - Embolism [Unknown]
  - Circulatory collapse [Unknown]
  - Hypoxia [Unknown]
